FAERS Safety Report 6188073-X (Version None)
Quarter: 2009Q2

REPORT INFORMATION
  Report Type: 
  Country: None (occurrence: None)
  Receive Date: 20090513
  Receipt Date: 20090504
  Transmission Date: 20091009
  Serious: Yes (Hospitalization, Other)
  Sender: FDA-Public Use
  Company Number: PHHY2009FR07554

PATIENT
  Sex: Female
  Weight: 45 kg

DRUGS (6)
  1. ACLASTA [Suspect]
     Dosage: 5 MG
     Route: 042
  2. LYRICA [Concomitant]
     Indication: EPILEPSY
     Dosage: 3 DF/DAY
     Route: 048
  3. LASIX [Concomitant]
     Indication: SYSTEMIC LUPUS ERYTHEMATOSUS
     Dosage: 1 DF/DAY
     Route: 048
  4. LEVOTHYROX [Concomitant]
     Indication: HYPOTHYROIDISM
     Dosage: 1DF/DAY
     Route: 048
  5. RIVOTRIL [Concomitant]
     Indication: EPILEPSY
     Dosage: 5 MG, BID
     Route: 048
  6. KALEORID [Concomitant]
     Indication: HYPOKALAEMIA
     Dosage: 2 DF/DAY
     Route: 048

REACTIONS (9)
  - CEREBROVASCULAR ACCIDENT [None]
  - CONFUSIONAL STATE [None]
  - DEMYELINATION [None]
  - DYSARTHRIA [None]
  - FACIAL PALSY [None]
  - FALL [None]
  - GAIT DISTURBANCE [None]
  - HYPOKINESIA [None]
  - NERVOUS SYSTEM DISORDER [None]
